FAERS Safety Report 9397709 (Version 2)
Quarter: 2013Q3

REPORT INFORMATION
  Report Type: Spontaneous
  Country: US (occurrence: US)
  Receive Date: 20130712
  Receipt Date: 20130723
  Transmission Date: 20140515
  Serious: Yes (Other)
  Sender: FDA-Public Use
  Company Number: US-ASTELLAS-2013US007263

PATIENT
  Age: 70 Year
  Sex: Male

DRUGS (4)
  1. TARCEVA [Suspect]
     Indication: LUNG NEOPLASM MALIGNANT
     Dosage: 150 MG, UID/QD
     Route: 048
     Dates: start: 20130320
  2. LOPRESSOR [Concomitant]
     Indication: HYPERTENSION
     Dosage: UNK
     Route: 065
  3. LISINOPRIL [Concomitant]
     Indication: HYPERTENSION
     Dosage: UNK
     Route: 065
  4. NORVASC [Concomitant]
     Indication: HYPERTENSION
     Dosage: UNK
     Route: 065

REACTIONS (1)
  - Hypotension [Recovering/Resolving]
